FAERS Safety Report 7805101 (Version 2)
Quarter: 2015Q2

REPORT INFORMATION
  Report Type: Spontaneous
  Country: US (occurrence: None)
  Receive Date: 20110120
  Receipt Date: 20150511
  Transmission Date: 20150821
  Serious: Yes (Other)
  Sender: FDA-Public Use
  Company Number: 2011000039

PATIENT
  Age: 87 Year
  Sex: Female
  Weight: 58 kg

DRUGS (7)
  1. LOVENOX [Concomitant]
     Active Substance: ENOXAPARIN SODIUM
  2. SIMVASTATIN. [Concomitant]
     Active Substance: SIMVASTATIN
  3. METOPROLOL (METOPROLOL) [Concomitant]
     Active Substance: METOPROLOL
  4. AFRIN [Concomitant]
     Active Substance: OXYMETAZOLINE
  5. GEMCITABINE [Concomitant]
     Active Substance: GEMCITABINE\GEMCITABINE HYDROCHLORIDE
  6. AMIODARONE (AMIODARONE) [Concomitant]
     Active Substance: AMIODARONE
  7. TARCEVA [Suspect]
     Active Substance: ERLOTINIB HYDROCHLORIDE
     Indication: LUNG NEOPLASM MALIGNANT
     Dosage: 150 MG, QD, ORAL
     Route: 048
     Dates: start: 20101216

REACTIONS (6)
  - Pulmonary oedema [None]
  - Nail discolouration [None]
  - Deafness [None]
  - Eye irritation [None]
  - Rash [None]
  - Ocular hyperaemia [None]
